FAERS Safety Report 8608052-X (Version None)
Quarter: 2012Q3

REPORT INFORMATION
  Report Type: 
  Country: None (occurrence: None)
  Receive Date: 20120821
  Receipt Date: 20120813
  Transmission Date: 20120928
  Serious: Yes (Hospitalization, Other)
  Sender: FDA-Public Use
  Company Number: CO-AMGEN-COLSP2012052350

PATIENT
  Age: 75 Year
  Sex: Female

DRUGS (2)
  1. ENBREL [Suspect]
     Indication: RHEUMATOID ARTHRITIS
     Dosage: 50 MG, WEEKLY
     Route: 058
     Dates: start: 20120730
  2. LOPRESOR                           /00376902/ [Concomitant]
     Indication: BLOOD PRESSURE INCREASED
     Dosage: 1 DF (TABLET), 1X/DAY
     Route: 048
     Dates: start: 20080101

REACTIONS (8)
  - WALKING DISABILITY [None]
  - BACK PAIN [None]
  - DRUG INEFFECTIVE [None]
  - ARTHRALGIA [None]
  - PAIN IN EXTREMITY [None]
  - URINARY TRACT INFECTION [None]
  - BLOOD PRESSURE FLUCTUATION [None]
  - MUSCULAR WEAKNESS [None]
